FAERS Safety Report 8967352 (Version 1)
Quarter: 2012Q4

REPORT INFORMATION
  Report Type: 
  Country: UA (occurrence: UA)
  Receive Date: 20121214
  Receipt Date: 20121214
  Transmission Date: 20130627
  Serious: Yes (Hospitalization)
  Sender: FDA-Public Use
  Company Number: PHHY2012UA115223

PATIENT
  Age: 58 Year
  Sex: Male

DRUGS (1)
  1. RETARPEN [Suspect]
     Indication: RHEUMATIC HEART DISEASE
     Dosage: 24000000 IU
     Route: 030
     Dates: start: 20080317

REACTIONS (4)
  - Dizziness [Recovered/Resolved with Sequelae]
  - Asthenia [Recovered/Resolved with Sequelae]
  - Nausea [Recovered/Resolved with Sequelae]
  - Blood pressure increased [Recovered/Resolved with Sequelae]
